FAERS Safety Report 24166081 (Version 1)
Quarter: 2024Q3

REPORT INFORMATION
  Report Type: Report from Study
  Country: US (occurrence: None)
  Receive Date: 20240802
  Receipt Date: 20240802
  Transmission Date: 20241017
  Serious: Yes (Hospitalization)
  Sender: ASTRAZENECA
  Company Number: 2023A217319

PATIENT
  Sex: Female

DRUGS (1)
  1. FASENRA [Suspect]
     Active Substance: BENRALIZUMAB
     Indication: Asthma
     Dosage: FASENRA 30 MG AI PEN 1 ML INJECT 30 MG (1 PEN) UNDER THE SKIN AT WEEKS 0, 4, AND 8 FOLLOWED BY EV...
     Route: 058
     Dates: start: 20230829

REACTIONS (1)
  - Cardiac disorder [Unknown]
